FAERS Safety Report 6731029-6 (Version None)
Quarter: 2010Q2

REPORT INFORMATION
  Report Type: 
  Country: None (occurrence: None)
  Receive Date: 20100518
  Receipt Date: 20100512
  Transmission Date: 20101027
  Serious: Yes (Death, Other)
  Sender: FDA-Public Use
  Company Number: GB-WYE-G03825509

PATIENT
  Sex: Female

DRUGS (6)
  1. EFFEXOR XR [Suspect]
     Route: 048
     Dates: start: 20040101
  2. EFFEXOR XR [Interacting]
     Route: 048
  3. ATENOLOL [Concomitant]
     Dosage: UNKNOWN
     Route: 048
     Dates: start: 20080101
  4. VALPROATE SODIUM [Concomitant]
     Indication: CONVULSION
     Dosage: UNKNOWN
     Dates: start: 20080101
  5. CLOZARIL [Interacting]
     Indication: SCHIZOPHRENIA
     Dosage: UNSPECIFIED DOSE
     Route: 048
     Dates: start: 20080101, end: 20090501
  6. CLOZARIL [Interacting]
     Dosage: 650 MG (FREQUENCY UNKNOWN)
     Route: 048
     Dates: start: 20090501

REACTIONS (4)
  - CIRCULATORY COLLAPSE [None]
  - CONVULSION [None]
  - DRUG INTERACTION [None]
  - DRUG TOXICITY [None]
